FAERS Safety Report 6521554-5 (Version None)
Quarter: 2009Q4

REPORT INFORMATION
  Report Type: 
  Country: None (occurrence: None)
  Receive Date: 20091224
  Receipt Date: 20091214
  Transmission Date: 20100525
  Serious: Yes (Other)
  Sender: FDA-Public Use
  Company Number: A-NJ2009-30835

PATIENT
  Age: 83 Year
  Sex: Female

DRUGS (4)
  1. TRACLEER [Suspect]
     Indication: PULMONARY ARTERIAL HYPERTENSION
     Dosage: 62.5 MG,  ORAL
     Route: 048
     Dates: start: 20080825, end: 20080101
  2. TRACLEER [Suspect]
     Indication: PULMONARY ARTERIAL HYPERTENSION
     Dosage: 62.5 MG,  ORAL
     Route: 048
     Dates: start: 20091111, end: 20091125
  3. REVATIO [Concomitant]
  4. COUMADIN [Concomitant]

REACTIONS (4)
  - DYSPNOEA [None]
  - OEDEMA PERIPHERAL [None]
  - ROAD TRAFFIC ACCIDENT [None]
  - SYNCOPE [None]
